FAERS Safety Report 5566904-1 (Version None)
Quarter: 2007Q4

REPORT INFORMATION
  Report Type: 
  Country: None (occurrence: None)
  Receive Date: 20071219
  Receipt Date: 20061228
  Transmission Date: 20080405
  Serious: No
  Sender: FDA-Public Use
  Company Number: US-BRISTOL-MYERS SQUIBB COMPANY-13626759

PATIENT
  Age: 56 Year
  Sex: Male
  Weight: 79 kg

DRUGS (1)
  1. PRAVACHOL [Suspect]
     Indication: PROPHYLAXIS

REACTIONS (2)
  - MUSCLE SPASMS [None]
  - WEIGHT DECREASED [None]
